FAERS Safety Report 17144661 (Version 3)
Quarter: 2020Q1

REPORT INFORMATION
  Report Type: Spontaneous
  Country: BE (occurrence: BE)
  Receive Date: 20191212
  Receipt Date: 20200319
  Transmission Date: 20200409
  Serious: Yes (Hospitalization, Other)
  Sender: FDA-Public Use
  Company Number: BE-BLUE EARTH DIAGNOSTICS LIMITED-BED-000105-2019

PATIENT
  Age: 77 Year
  Sex: Male

DRUGS (2)
  1. AXUMIN [Suspect]
     Active Substance: FLUCICLOVINE F-18
     Indication: PROSTATE CANCER METASTATIC
  2. AXUMIN [Suspect]
     Active Substance: FLUCICLOVINE F-18
     Indication: POSITRON EMISSION TOMOGRAM
     Dosage: UNK
     Route: 042
     Dates: start: 20191122

REACTIONS (3)
  - Epilepsy [Unknown]
  - Confusional state [Unknown]
  - Hyponatraemia [Recovered/Resolved]

NARRATIVE: CASE EVENT DATE: 20191123
